FAERS Safety Report 16712139 (Version 2)
Quarter: 2019Q4

REPORT INFORMATION
  Report Type: Spontaneous
  Country: IT (occurrence: IT)
  Receive Date: 20190816
  Receipt Date: 20191112
  Transmission Date: 20200122
  Serious: Yes (Other)
  Sender: FDA-Public Use
  Company Number: IT-MYLANLABS-2019M1076223

PATIENT
  Age: 15 Year
  Sex: Male

DRUGS (5)
  1. CARBOLITHIUM [Concomitant]
     Active Substance: LITHIUM CARBONATE
     Dosage: 5 DOSAGE FORM, QD
  2. CARBOLITHIUM [Concomitant]
     Active Substance: LITHIUM CARBONATE
     Dosage: 750 MILLIGRAM
  3. ARIPIPRAZOLE. [Suspect]
     Active Substance: ARIPIPRAZOLE
     Indication: AFFECTIVE DISORDER
     Dosage: 7.5 MILLIGRAM, QD
     Route: 048
     Dates: start: 20170427, end: 20170512
  4. XANAX [Concomitant]
     Active Substance: ALPRAZOLAM
     Dosage: 10 GTT DROPS, PRN (AS NECESSARY)
  5. ARIPIPRAZOLE. [Suspect]
     Active Substance: ARIPIPRAZOLE
     Dosage: 7.5 MILLIGRAM, QD
     Route: 048
     Dates: start: 20170505, end: 20170512

REACTIONS (5)
  - Muscle contractions involuntary [Unknown]
  - Extrapyramidal disorder [Recovering/Resolving]
  - Muscle spasms [Recovering/Resolving]
  - Headache [Recovering/Resolving]
  - Tremor [Unknown]

NARRATIVE: CASE EVENT DATE: 20170512
